FAERS Safety Report 9157962 (Version 2)
Quarter: 2013Q3

REPORT INFORMATION
  Report Type: Spontaneous
  Country: FR (occurrence: FR)
  Receive Date: 20130312
  Receipt Date: 20130716
  Transmission Date: 20140515
  Serious: Yes (Hospitalization)
  Sender: FDA-Public Use
  Company Number: FR-ELI_LILLY_AND_COMPANY-FR201303001337

PATIENT
  Age: 83 Year
  Sex: 0

DRUGS (2)
  1. FORSTEO [Suspect]
     Indication: OSTEOPOROSIS
     Dosage: 20 UG, QD
     Route: 058
     Dates: start: 20110707, end: 20130329
  2. FORSTEO [Suspect]
     Indication: SPINAL FRACTURE

REACTIONS (2)
  - Patella fracture [Unknown]
  - Arteritis [Unknown]
